FAERS Safety Report 21844437 (Version 1)
Quarter: 2023Q1

REPORT INFORMATION
  Report Type: Spontaneous
  Country: CA (occurrence: CA)
  Receive Date: 20230110
  Receipt Date: 20230110
  Transmission Date: 20230418
  Serious: Yes (Other)
  Sender: FDA-Public Use
  Company Number: CA-ANIPHARMA-2020-CA-001534

PATIENT
  Age: 65 Year
  Sex: Female
  Weight: 97 kg

DRUGS (5)
  1. ATACAND [Suspect]
     Active Substance: CANDESARTAN CILEXETIL
     Indication: Diabetes mellitus
     Dosage: 16 MG UNK / 8 MG DAILY
     Route: 048
  2. TOLVAPTAN [Suspect]
     Active Substance: TOLVAPTAN
     Dosage: 60 MG DAILY / 60 MG DAILY / 30 MG DAILY / 15 MG DAILY / 45 MG DAILY
     Route: 048
  3. GABAPENTIN [Concomitant]
     Active Substance: GABAPENTIN
     Dosage: 100 MG X 2 TWO TO TO THREE TIMES A DAY
     Route: 048
  4. METOPROLOL [Concomitant]
     Active Substance: METOPROLOL
     Dosage: 23 MG BID / DOSE: 25 MG  BID
     Route: 065
  5. ROSIGLITAZONE MALEATE [Concomitant]
     Active Substance: ROSIGLITAZONE MALEATE
     Dosage: 2 MG DAILY
     Route: 048

REACTIONS (12)
  - Blood creatinine increased [Not Recovered/Not Resolved]
  - Product dose omission issue [Not Recovered/Not Resolved]
  - Nerve injury [Unknown]
  - Chronic kidney disease [Not Recovered/Not Resolved]
  - Dizziness [Not Recovered/Not Resolved]
  - Asthenia [Not Recovered/Not Resolved]
  - Blood creatine phosphokinase increased [Not Recovered/Not Resolved]
  - Blood pressure decreased [Not Recovered/Not Resolved]
  - Diarrhoea [Not Recovered/Not Resolved]
  - End stage renal disease [Not Recovered/Not Resolved]
  - Fatigue [Not Recovered/Not Resolved]
  - Nocturia [Not Recovered/Not Resolved]

NARRATIVE: CASE EVENT DATE: 20160601
